FAERS Safety Report 7730163-1 (Version None)
Quarter: 2011Q3

REPORT INFORMATION
  Report Type: 
  Country: None (occurrence: None)
  Receive Date: 20110906
  Receipt Date: 20110901
  Transmission Date: 20111222
  Serious: Yes (Other)
  Sender: FDA-Public Use
  Company Number: CN-PFIZER INC-2011204648

PATIENT

DRUGS (1)
  1. LIPITOR [Suspect]
     Indication: CAROTID ARTERIOSCLEROSIS
     Dosage: 20 MG, UNK
     Route: 048

REACTIONS (1)
  - CARCINOEMBRYONIC ANTIGEN INCREASED [None]
